FAERS Safety Report 5220938-5 (Version None)
Quarter: 2007Q1

REPORT INFORMATION
  Report Type: 
  Country: None (occurrence: None)
  Receive Date: 20070125
  Receipt Date: 20070125
  Transmission Date: 20070707
  Serious: Yes (Life-Threatening, Other)
  Sender: FDA-Public Use
  Company Number: None

PATIENT
  Age: 30 Year
  Sex: Female
  Weight: 63.05 kg

DRUGS (1)
  1. ZYRTEC [Suspect]
     Indication: URTICARIA
     Dosage: 10MG 1 PER DAY PO
     Route: 048
     Dates: start: 20061222, end: 20070122

REACTIONS (4)
  - ABNORMAL DREAMS [None]
  - FATIGUE [None]
  - SUICIDAL IDEATION [None]
  - WEIGHT INCREASED [None]
